FAERS Safety Report 23957231 (Version 1)
Quarter: 2024Q2

REPORT INFORMATION
  Report Type: Spontaneous
  Country: US (occurrence: None)
  Receive Date: 20240607
  Receipt Date: 20240607
  Transmission Date: 20240715
  Serious: No
  Sender: FDA-Public Use
  Company Number: None

PATIENT
  Age: 74 Year
  Sex: Female
  Weight: 81 kg

DRUGS (11)
  1. TIZANIDINE [Suspect]
     Active Substance: TIZANIDINE
     Indication: Neck pain
     Dosage: 1 CAPSULE 3 TIMES A DAY ORAL?
     Route: 048
     Dates: start: 20240606, end: 20240607
  2. TIZANIDINE [Suspect]
     Active Substance: TIZANIDINE
     Indication: Arthralgia
  3. TIZANIDINE [Suspect]
     Active Substance: TIZANIDINE
     Indication: Arthralgia
  4. ESTRADIOL [Concomitant]
     Active Substance: ESTRADIOL
  5. METRONIDAZOLE [Concomitant]
     Active Substance: METRONIDAZOLE
  6. WOMENS 55+ VITAMIN [Concomitant]
  7. VITAMIN D [Concomitant]
     Active Substance: VITAMIN D NOS
  8. MAGNESIUM [Concomitant]
     Active Substance: MAGNESIUM
  9. POTASSIUM [Concomitant]
     Active Substance: POTASSIUM
  10. ALLEGRA [Concomitant]
     Active Substance: FEXOFENADINE HYDROCHLORIDE
  11. TYLENOL PM [Concomitant]
     Active Substance: ACETAMINOPHEN\DIPHENHYDRAMINE

REACTIONS (2)
  - Insomnia [None]
  - Nightmare [None]

NARRATIVE: CASE EVENT DATE: 20240606
